FAERS Safety Report 6736748-3 (Version None)
Quarter: 2010Q2

REPORT INFORMATION
  Report Type: 
  Country: None (occurrence: None)
  Receive Date: 20100521
  Receipt Date: 20100514
  Transmission Date: 20101027
  Serious: Yes (Other)
  Sender: FDA-Public Use
  Company Number: US-PFIZER INC-2010061805

PATIENT
  Sex: Female
  Weight: 87.075 kg

DRUGS (3)
  1. CHANTIX [Suspect]
     Indication: SMOKING CESSATION THERAPY
     Dosage: 0.5 MG, 1X/DAY
     Route: 048
     Dates: start: 20100501, end: 20100501
  2. CHANTIX [Suspect]
     Dosage: 1 MG, 2X/DAY
     Dates: start: 20100501, end: 20100513
  3. FAMOTIDINE [Concomitant]
     Indication: HERNIA
     Dosage: 20 MG, UNK

REACTIONS (6)
  - AGITATION [None]
  - BLADDER OPERATION [None]
  - DYSPNOEA [None]
  - HYPERTENSION [None]
  - NERVOUSNESS [None]
  - RENAL PAIN [None]
